FAERS Safety Report 6469792-4 (Version None)
Quarter: 2009Q4

REPORT INFORMATION
  Report Type: 
  Country: None (occurrence: None)
  Receive Date: 20091203
  Receipt Date: 20071116
  Transmission Date: 20100525
  Serious: Yes (Hospitalization)
  Sender: FDA-Public Use
  Company Number: SE-ELI_LILLY_AND_COMPANY-SE200710007597

PATIENT
  Sex: Male

DRUGS (6)
  1. OLANZAPINE [Suspect]
     Indication: BIPOLAR DISORDER
     Dosage: 10 MG, DAILY (1/D)
     Dates: end: 20070701
  2. LAMICTAL [Concomitant]
     Dosage: 200 MG, UNK
  3. ABILIFY [Concomitant]
     Dosage: 10 MG, UNK
  4. CITALOPRAM HYDROBROMIDE [Concomitant]
  5. MIRTAZAPINE [Concomitant]
  6. NOZINAN [Concomitant]
     Dosage: 25 MG, UNK

REACTIONS (1)
  - CEREBRAL INFARCTION [None]
